FAERS Safety Report 6222618-6 (Version None)
Quarter: 2009Q2

REPORT INFORMATION
  Report Type: 
  Country: None (occurrence: None)
  Receive Date: 20090609
  Receipt Date: 20090609
  Transmission Date: 20091009
  Serious: Yes (Other)
  Sender: FDA-Public Use
  Company Number: None

PATIENT
  Age: 61 Year
  Sex: Female
  Weight: 91.6266 kg

DRUGS (1)
  1. CETIRIZINE HCL [Suspect]
     Indication: HYPERSENSITIVITY
     Dosage: 10 MG 1X/DAY PO
     Route: 048
     Dates: start: 20090605, end: 20090607

REACTIONS (5)
  - ASTHENIA [None]
  - DIZZINESS [None]
  - DRY MOUTH [None]
  - FATIGUE [None]
  - THINKING ABNORMAL [None]
